FAERS Safety Report 5162198-X (Version None)
Quarter: 2006Q4

REPORT INFORMATION
  Report Type: 
  Country: None (occurrence: None)
  Receive Date: 20061121
  Receipt Date: 20061110
  Transmission Date: 20070319
  Serious: Yes (Death, Hospitalization)
  Sender: FDA-Public Use
  Company Number: FRWYE496310NOV06

PATIENT
  Age: 64 Year
  Sex: Male

DRUGS (12)
  1. EFFEXOR [Suspect]
     Dosage: 1 DOSE 1X PER 1 DAY ORAL  LONG STANDING
     Route: 048
     Dates: end: 20060919
  2. ATORVASTATIN CALCIUM [Suspect]
     Dosage: 1 TABLET 1X PER 1 DAY ORAL LONG STANDING
     Route: 048
     Dates: end: 20060919
  3. SINTROM [Concomitant]
  4. LASIX [Concomitant]
  5. DIGOXIN [Concomitant]
  6. CORDARONE [Concomitant]
  7. POTASSIUM CHLORIDE [Concomitant]
  8. ALPRAZOLAM [Concomitant]
  9. INEXIUM (ESOMEPRAZOLE) [Concomitant]
  10. CORGARD [Concomitant]
  11. TRAMADOL HCL [Concomitant]
  12. SOLU-MEDROL [Concomitant]

REACTIONS (6)
  - DYSPHONIA [None]
  - GENERAL PHYSICAL HEALTH DETERIORATION [None]
  - LUNG CARCINOMA CELL TYPE UNSPECIFIED RECURRENT [None]
  - METASTASES TO LIVER [None]
  - METASTASIS [None]
  - PLEURAL EFFUSION [None]
